FAERS Safety Report 9706964 (Version 1)
Quarter: 2013Q4

REPORT INFORMATION
  Report Type: Spontaneous
  Country: US (occurrence: US)
  Receive Date: 20131125
  Receipt Date: 20131125
  Transmission Date: 20140711
  Serious: No
  Sender: FDA-Public Use
  Company Number: US-PFIZER INC-2013336100

PATIENT
  Age: 70 Year
  Sex: Female
  Weight: 109.8 kg

DRUGS (3)
  1. CELEBREX [Suspect]
     Dosage: UNK
     Dates: start: 201308, end: 201311
  2. LISINOPRIL [Concomitant]
     Dosage: UNK
  3. REQUIP [Concomitant]
     Indication: RESTLESS LEGS SYNDROME
     Dosage: UNK

REACTIONS (1)
  - Drug ineffective [Unknown]
